FAERS Safety Report 12225693 (Version 2)
Quarter: 2016Q2

REPORT INFORMATION
  Report Type: Spontaneous
  Country: JP (occurrence: JP)
  Receive Date: 20160331
  Receipt Date: 20160502
  Transmission Date: 20160815
  Serious: Yes (Death, Other)
  Sender: FDA-Public Use
  Company Number: JP-TEVA-648277ISR

PATIENT
  Age: 61 Year
  Sex: Female

DRUGS (2)
  1. CISPLATIN. [Suspect]
     Active Substance: CISPLATIN
     Indication: OVARIAN CANCER
     Dosage: UNK, CYCLIC (325 MG/M2, 2ND CYCLE)
  2. ETOPOSIDE. [Concomitant]
     Active Substance: ETOPOSIDE
     Indication: OVARIAN CANCER
     Dosage: UNK, CYCLIC (2ND CYCLE)

REACTIONS (2)
  - Encephalopathy [Unknown]
  - Pneumonia [Fatal]
